FAERS Safety Report 9525215 (Version 1)
Quarter: 2013Q1

REPORT INFORMATION
  Report Type: Spontaneous
  Country: US (occurrence: None)
  Receive Date: 20130314
  Receipt Date: 20130314
  Transmission Date: 20140127
  Serious: No
  Sender: FDA-Public Use
  Company Number: 1301USA013042

PATIENT
  Age: 47 Year
  Sex: Female

DRUGS (3)
  1. PEGINTRON [Suspect]
     Indication: HEPATITIS C
     Dates: start: 20121205
  2. RIBAVIRIN [Suspect]
     Indication: HEPATITIS C
     Dates: start: 20121205
  3. VICTRELIS [Suspect]
     Indication: HEPATITIS C
     Dates: start: 20130103

REACTIONS (3)
  - Oedema [None]
  - Pain [None]
  - Face oedema [None]
